FAERS Safety Report 8234642-2 (Version None)
Quarter: 2012Q1

REPORT INFORMATION
  Report Type: 
  Country: None (occurrence: None)
  Receive Date: 20120321
  Receipt Date: 20120307
  Transmission Date: 20120608
  Serious: Yes (Death, Life-Threatening, Hospitalization, Other)
  Sender: FDA-Public Use
  Company Number: 2008AL012367

PATIENT
  Age: 64 Year
  Sex: Male
  Weight: 149.687 kg

DRUGS (47)
  1. AVAPRO [Concomitant]
  2. METOPROLOL SUCCINATE [Concomitant]
  3. METFORMIN HCL [Concomitant]
  4. NEXIUM [Concomitant]
  5. ATROVENT [Concomitant]
  6. LASIX [Concomitant]
  7. TERNORMIN [Concomitant]
  8. PLAVIX [Concomitant]
  9. SIMVASTATIN [Concomitant]
  10. VANCOMYCIN [Concomitant]
  11. WARFARIN SODIUM [Concomitant]
  12. MAGNESIUM OXIDE [Concomitant]
  13. AVANDIA [Concomitant]
  14. GLYBURIDE [Concomitant]
  15. RENAGEL [Concomitant]
  16. ISOSORBIDE DINITRATE [Concomitant]
  17. FUROSEMIDE [Concomitant]
  18. POTASSIUM [Concomitant]
  19. FERROUS SULFATE TAB [Concomitant]
  20. LACTULOSE [Concomitant]
  21. HEPARIN [Concomitant]
  22. LIPITOR [Concomitant]
  23. TYLENOL [Concomitant]
  24. DIGOXIN [Suspect]
     Indication: ATRIAL FIBRILLATION
     Dosage: 0.25 MG;QD;PO
     Route: 048
     Dates: start: 20071109, end: 20081105
  25. CHLORIDE [Concomitant]
  26. ALLOPURINOL [Concomitant]
  27. LEVEMIR [Concomitant]
  28. BD PEN NEEDLES [Concomitant]
  29. TYLENOL [Concomitant]
  30. NITROGLYCERIN [Concomitant]
  31. VIAGRA [Concomitant]
  32. NITROGLYCERIN [Concomitant]
  33. NOVOLOG [Concomitant]
  34. ALBUTEROL [Concomitant]
  35. DYAZIDE [Concomitant]
  36. IRON [Concomitant]
  37. DIATX [Concomitant]
  38. ARANESP [Concomitant]
  39. FUROSEMIDE [Concomitant]
  40. GENTAMICIN [Concomitant]
  41. IMDUR [Concomitant]
  42. PLAVIX [Concomitant]
  43. ZYLOPRIM [Concomitant]
  44. RENAL CAPSULE [Concomitant]
  45. ASPIRIN [Concomitant]
  46. COUMADIN [Concomitant]
  47. MULTI-VITAMINS [Concomitant]

REACTIONS (60)
  - HAEMOGLOBIN DECREASED [None]
  - HAEMATEMESIS [None]
  - GENERAL PHYSICAL HEALTH DETERIORATION [None]
  - VENTRICULAR HYPERTROPHY [None]
  - ABDOMINAL HERNIA [None]
  - ILEUS PARALYTIC [None]
  - VENTRICULAR EXTRASYSTOLES [None]
  - ATRIOVENTRICULAR BLOCK FIRST DEGREE [None]
  - ATRIAL FIBRILLATION [None]
  - THROMBOCYTOPENIA [None]
  - FATIGUE [None]
  - GALLBLADDER DISORDER [None]
  - HEPATIC STEATOSIS [None]
  - UNEVALUABLE EVENT [None]
  - DIABETES MELLITUS [None]
  - HEPATIC CIRRHOSIS [None]
  - STAPHYLOCOCCAL BACTERAEMIA [None]
  - ASTHENIA [None]
  - NEPHROPATHY [None]
  - OBESITY [None]
  - ALCOHOL ABUSE [None]
  - ASTHMA [None]
  - CHOLELITHIASIS [None]
  - PULMONARY OEDEMA [None]
  - ATELECTASIS [None]
  - MULTIPLE INJURIES [None]
  - RENAL FAILURE ACUTE [None]
  - CHRONIC OBSTRUCTIVE PULMONARY DISEASE [None]
  - ISCHAEMIA [None]
  - QRS AXIS ABNORMAL [None]
  - MYOCARDIAL INFARCTION [None]
  - INTESTINAL OBSTRUCTION [None]
  - PLEURAL EFFUSION [None]
  - ANXIETY [None]
  - UPPER GASTROINTESTINAL HAEMORRHAGE [None]
  - HYPOTENSION [None]
  - PORTAL HYPERTENSIVE GASTROPATHY [None]
  - PULMONARY ARTERIAL WEDGE PRESSURE INCREASED [None]
  - ECONOMIC PROBLEM [None]
  - VARICES OESOPHAGEAL [None]
  - MULTI-ORGAN FAILURE [None]
  - DIALYSIS [None]
  - THROMBOSIS [None]
  - MENTAL STATUS CHANGES [None]
  - UPPER RESPIRATORY TRACT INFECTION [None]
  - CARDIAC FAILURE CONGESTIVE [None]
  - CHANGE OF BOWEL HABIT [None]
  - PORTAL HYPERTENSION [None]
  - SHOCK [None]
  - LUNG CONSOLIDATION [None]
  - CONDUCTION DISORDER [None]
  - PNEUMONIA ASPIRATION [None]
  - PAIN [None]
  - ARTERIOSCLEROSIS [None]
  - METABOLIC SYNDROME [None]
  - CARDIOMEGALY [None]
  - SPINAL OSTEOARTHRITIS [None]
  - HEPATOSPLENOMEGALY [None]
  - ACQUIRED DIAPHRAGMATIC EVENTRATION [None]
  - SEPSIS [None]
